FAERS Safety Report 5152371-9 (Version None)
Quarter: 2006Q4

REPORT INFORMATION
  Report Type: 
  Country: None (occurrence: None)
  Receive Date: 20061116
  Receipt Date: 20060727
  Transmission Date: 20070319
  Serious: Yes (Hospitalization)
  Sender: FDA-Public Use
  Company Number: NZ-ELI_LILLY_AND_COMPANY-NZ200608001084

PATIENT
  Sex: Female
  Weight: 130 kg

DRUGS (7)
  1. ZYPREXA [Suspect]
     Indication: BRIEF PSYCHOTIC DISORDER, WITH POSTPARTUM ONSET
     Dosage: 20 MG, EACH EVENING
     Dates: start: 20060201
  2. CITALOPRAM HYDROBROMIDE [Concomitant]
     Dosage: 20 MG, EACH MORNING
  3. OMEPRAZOLE [Concomitant]
     Dosage: 20 MG, EACH MORNING
  4. ASPIRIN [Concomitant]
     Dosage: 75 MG, EACH MORNING
  5. LORAZEPAM [Concomitant]
     Dosage: 0.25 MG, 2/D
  6. ZUCLOPENTHIXOL DECANOATE [Concomitant]
     Dosage: 200 MG, OTHER
     Route: 030
  7. QUINAPRIL [Concomitant]
     Dosage: 10 MG, EACH MORNING

REACTIONS (11)
  - ASTHMA [None]
  - CARDIAC VALVE DISEASE [None]
  - CARDIOMEGALY [None]
  - CHRONIC OBSTRUCTIVE PULMONARY DISEASE [None]
  - COR PULMONALE [None]
  - HYPERTENSION [None]
  - HYPOVENTILATION [None]
  - PNEUMONIA [None]
  - RENAL FAILURE ACUTE [None]
  - RESPIRATORY FAILURE [None]
  - SLEEP APNOEA SYNDROME [None]
